FAERS Safety Report 6766231-0 (Version None)
Quarter: 2010Q2

REPORT INFORMATION
  Report Type: 
  Country: None (occurrence: None)
  Receive Date: 20100611
  Receipt Date: 20100607
  Transmission Date: 20101027
  Serious: Yes (Death)
  Sender: FDA-Public Use
  Company Number: DK-SANOFI-AVENTIS-2010SA032840

PATIENT

DRUGS (2)
  1. OXALIPLATIN [Suspect]
     Route: 041
  2. CAPECITABINE [Suspect]
     Route: 048

REACTIONS (1)
  - FEBRILE NEUTROPENIA [None]
